FAERS Safety Report 25462194 (Version 3)
Quarter: 2025Q3

REPORT INFORMATION
  Report Type: Report from Study
  Country: US (occurrence: US)
  Receive Date: 20250620
  Receipt Date: 20250725
  Transmission Date: 20251020
  Serious: No
  Sender: MALLINCKRODT
  Company Number: US-MALLINCKRODT-MNK202503761

PATIENT
  Age: 72 Year
  Sex: Male

DRUGS (3)
  1. CORTICOTROPIN [Suspect]
     Active Substance: CORTICOTROPIN
     Indication: Iridocyclitis
     Route: 058
     Dates: start: 20250613
  2. CORTICOTROPIN [Suspect]
     Active Substance: CORTICOTROPIN
     Indication: Disease recurrence
  3. PREDNISONE [Suspect]
     Active Substance: PREDNISONE
     Indication: Glaucoma

REACTIONS (4)
  - Muscle spasms [Unknown]
  - Pain in extremity [Unknown]
  - Lacrimation increased [Unknown]
  - Injection site irritation [Recovered/Resolved]

NARRATIVE: CASE EVENT DATE: 20250101
